FAERS Safety Report 6407360-0 (Version None)
Quarter: 2009Q4

REPORT INFORMATION
  Report Type: 
  Country: None (occurrence: None)
  Receive Date: 20091014
  Receipt Date: 20090929
  Transmission Date: 20100525
  Serious: Yes (Hospitalization)
  Sender: FDA-Public Use
  Company Number: 8052899

PATIENT
  Age: 44 Year
  Sex: Female

DRUGS (4)
  1. PREDNISOLONE [Suspect]
     Indication: LEUKOCYTOCLASTIC VASCULITIS
     Dosage: 10 MG
  2. PREDNISOLONE [Suspect]
     Indication: LEUKOCYTOCLASTIC VASCULITIS
     Dosage: 25 MG /D
  3. DAPSONE [Suspect]
     Indication: LEUKOCYTOCLASTIC VASCULITIS
     Dosage: 100 MG
  4. EBASTINE [Suspect]
     Indication: LEUKOCYTOCLASTIC VASCULITIS
     Dosage: 10 MG

REACTIONS (5)
  - BLISTER [None]
  - DAPSONE SYNDROME [None]
  - DRUG RASH WITH EOSINOPHILIA AND SYSTEMIC SYMPTOMS [None]
  - LEUKOCYTOCLASTIC VASCULITIS [None]
  - LYMPHOCYTOSIS [None]
